FAERS Safety Report 6045686-3 (Version None)
Quarter: 2009Q1

REPORT INFORMATION
  Report Type: 
  Country: None (occurrence: None)
  Receive Date: 20090121
  Receipt Date: 20081128
  Transmission Date: 20090719
  Serious: Yes (Life-Threatening)
  Sender: FDA-Public Use
  Company Number: FR-PFIZER INC-2008099234

PATIENT

DRUGS (7)
  1. TENORMIN [Suspect]
     Route: 048
  2. ALFENTANIL [Suspect]
     Indication: PERIOPERATIVE ANALGESIA
     Route: 042
     Dates: start: 20080620, end: 20080620
  3. MOPRAL [Concomitant]
     Route: 048
  4. CEFAZOLIN [Concomitant]
     Dosage: UNK
     Route: 042
     Dates: start: 20080620, end: 20080620
  5. KARDEGIC [Concomitant]
     Dosage: 75 MG, UNK
     Dates: end: 20080615
  6. TAHOR [Concomitant]
     Dates: end: 20080619
  7. OMIX [Concomitant]
     Dates: end: 20080619

REACTIONS (2)
  - BRADYCARDIA [None]
  - CARDIAC ARREST [None]
